FAERS Safety Report 16791632 (Version 1)
Quarter: 2019Q3

REPORT INFORMATION
  Report Type: Spontaneous
  Country: US (occurrence: US)
  Receive Date: 20190910
  Receipt Date: 20190910
  Transmission Date: 20191005
  Serious: No
  Sender: FDA-Public Use
  Company Number: US-009507513-1909USA003191

PATIENT
  Sex: Male

DRUGS (2)
  1. CAPECITABINE. [Suspect]
     Active Substance: CAPECITABINE
     Dosage: UNK
  2. TEMODAR [Suspect]
     Active Substance: TEMOZOLOMIDE
     Indication: CARCINOID TUMOUR OF THE LIVER
     Dosage: 390 MILLIGRAM, QD
     Route: 048

REACTIONS (3)
  - Product dose omission [Unknown]
  - Vomiting [Recovered/Resolved]
  - Product use in unapproved indication [Unknown]
